FAERS Safety Report 5928518-0 (Version None)
Quarter: 2008Q4

REPORT INFORMATION
  Report Type: 
  Country: None (occurrence: None)
  Receive Date: 20081023
  Receipt Date: 20081016
  Transmission Date: 20090506
  Serious: Yes (Hospitalization)
  Sender: FDA-Public Use
  Company Number: US-ELI_LILLY_AND_COMPANY-US200809001185

PATIENT
  Age: 65 Year
  Sex: Female

DRUGS (8)
  1. BYETTA [Suspect]
     Dosage: UNK, UNKNOWN
  2. BYETTA [Suspect]
     Dosage: UNK, UNKNOWN
     Dates: start: 20080101, end: 20080101
  3. METFORMIN HYDROCHLORIDE [Concomitant]
     Indication: DIABETES MELLITUS
     Dosage: UNK, UNKNOWN
  4. STATIN                             /00084401/ [Concomitant]
  5. NSAID'S [Concomitant]
     Dosage: UNK, UNKNOWN
  6. ACE INHIBITOR NOS [Concomitant]
     Dosage: UNK, UNKNOWN
  7. DIURETICS [Concomitant]
     Dosage: UNK, UNKNOWN
  8. INSULIN [Concomitant]
     Dosage: UNK, UNKNOWN

REACTIONS (2)
  - NAUSEA [None]
  - PANCREATITIS [None]
